FAERS Safety Report 6111249-4 (Version None)
Quarter: 2009Q1

REPORT INFORMATION
  Report Type: 
  Country: None (occurrence: None)
  Receive Date: 20090309
  Receipt Date: 20090220
  Transmission Date: 20090719
  Serious: Yes (Death)
  Sender: FDA-Public Use
  Company Number: 8043696

PATIENT
  Age: 72 Year
  Sex: Female

DRUGS (2)
  1. PREDNISOLONE TAB [Suspect]
     Dosage: 20 MG /D
  2. METHYLPREDNISOLONE 4MG TAB [Suspect]
     Dosage: 0.5 G /D

REACTIONS (18)
  - ANAEMIA [None]
  - ASCITES [None]
  - BACK PAIN [None]
  - BENIGN PANCREATIC NEOPLASM [None]
  - C-REACTIVE PROTEIN INCREASED [None]
  - CARDIAC DISORDER [None]
  - GLOMERULONEPHRITIS [None]
  - GLOMERULONEPHROPATHY [None]
  - MULTI-ORGAN FAILURE [None]
  - MUSCULOSKELETAL CHEST PAIN [None]
  - PANCREATIC CYST [None]
  - PANCREATIC NECROSIS [None]
  - PANCREATITIS ACUTE [None]
  - PLATELET COUNT DECREASED [None]
  - PULMONARY CONGESTION [None]
  - RENAL IMPAIRMENT [None]
  - THYROID FUNCTION TEST ABNORMAL [None]
  - VASCULITIS [None]
